FAERS Safety Report 4736573-9 (Version None)
Quarter: 2005Q3

REPORT INFORMATION
  Report Type: 
  Country: None (occurrence: None)
  Receive Date: 20050808
  Receipt Date: 20050727
  Transmission Date: 20060218
  Serious: Yes (Hospitalization)
  Sender: FDA-Public Use
  Company Number: CA-BRISTOL-MYERS SQUIBB COMPANY-13053889

PATIENT
  Age: 67 Year
  Sex: Female
  Weight: 67 kg

DRUGS (8)
  1. CYCLOPHOSPHAMIDE [Suspect]
     Indication: CHRONIC LYMPHOCYTIC LEUKAEMIA
     Route: 042
     Dates: start: 20050705, end: 20050707
  2. FLUDARABINE [Suspect]
     Indication: CHRONIC LYMPHOCYTIC LEUKAEMIA
     Route: 042
     Dates: start: 20050705, end: 20050707
  3. GLICLAZIDE [Concomitant]
     Route: 048
     Dates: start: 19950101
  4. FOSAMAX [Concomitant]
     Dates: start: 20030101
  5. MOBIC [Concomitant]
     Dates: start: 20050401
  6. PAXIL [Concomitant]
     Dates: start: 19990101
  7. RITUXIMAB [Concomitant]
  8. MAGNESIUM SALICYLATE [Concomitant]
     Dates: start: 20050401

REACTIONS (6)
  - ASTHENIA [None]
  - CHILLS [None]
  - HEADACHE [None]
  - MALAISE [None]
  - NEUTROPHIL COUNT DECREASED [None]
  - PYREXIA [None]
